FAERS Safety Report 13495507 (Version 1)
Quarter: 2017Q2

REPORT INFORMATION
  Report Type: Spontaneous
  Country: US (occurrence: US)
  Receive Date: 20170428
  Receipt Date: 20170428
  Transmission Date: 20170830
  Serious: Yes (Hospitalization)
  Sender: FDA-Public Use
  Company Number: US-JNJFOC-20170421839

PATIENT
  Age: 58 Year
  Sex: Female

DRUGS (5)
  1. LEVODOPA [Concomitant]
     Active Substance: LEVODOPA
     Indication: RESTLESS LEGS SYNDROME
     Dosage: UP TO 450 MG
     Route: 065
  2. LEVODOPA [Concomitant]
     Active Substance: LEVODOPA
     Indication: PARKINSON^S DISEASE
     Dosage: UP TO 450 MG
     Route: 065
  3. ROPINIROLE. [Concomitant]
     Active Substance: ROPINIROLE
     Indication: RESTLESS LEGS SYNDROME
     Dosage: UP TO 4 MG
     Route: 065
  4. DIPHENHYDRAMINE HYDROCHLORIDE. [Suspect]
     Active Substance: DIPHENHYDRAMINE HYDROCHLORIDE
     Indication: INSOMNIA
     Dosage: AT BEDTIME FOR 6 YEARS
     Route: 065
  5. ROPINIROLE. [Concomitant]
     Active Substance: ROPINIROLE
     Indication: PARKINSON^S DISEASE
     Dosage: UP TO 4 MG
     Route: 065

REACTIONS (5)
  - Dystonia [Recovering/Resolving]
  - Withdrawal syndrome [Recovering/Resolving]
  - Therapeutic response unexpected [Unknown]
  - Intentional product misuse [Unknown]
  - Intentional product use issue [Unknown]
